FAERS Safety Report 4985928-6 (Version None)
Quarter: 2006Q2

REPORT INFORMATION
  Report Type: 
  Country: None (occurrence: None)
  Receive Date: 20060421
  Receipt Date: 20060405
  Transmission Date: 20061013
  Serious: Yes (Hospitalization)
  Sender: FDA-Public Use
  Company Number: 220001L06GBR

PATIENT
  Age: 36 Year
  Sex: Male

DRUGS (2)
  1. NORDITROPIN [Suspect]
     Dosage: 4 IU
  2. ANABOLIC STEROIDS [Concomitant]

REACTIONS (9)
  - DEHYDRATION [None]
  - DRUG ABUSER [None]
  - DYSPHONIA [None]
  - DYSPNOEA [None]
  - LARYNGEAL DISORDER [None]
  - LARYNGEAL OEDEMA [None]
  - LARYNGOCELE [None]
  - STRIDOR [None]
  - VOCAL CORD DISORDER [None]
